FAERS Safety Report 8951667 (Version 2)
Quarter: 2013Q2

REPORT INFORMATION
  Report Type: Spontaneous
  Country: US (occurrence: US)
  Receive Date: 20121204
  Receipt Date: 20130603
  Transmission Date: 20140414
  Serious: Yes (Other)
  Sender: FDA-Public Use
  Company Number: CHPA2012US022761

PATIENT
  Age: 78 Year
  Sex: Female

DRUGS (2)
  1. EX-LAX MAX STR LAX PILLS SENNA [Suspect]
     Indication: CONSTIPATION
     Dosage: 2 DF, A DAY
     Route: 048
  2. EX-LAX MAX STR LAX PILLS SENNA [Suspect]
     Dosage: 2 DF,ONCE OR TWICE PER DAY
     Route: 048
     Dates: start: 20121026, end: 20121028

REACTIONS (6)
  - Drug dependence [Not Recovered/Not Resolved]
  - Faecal incontinence [Unknown]
  - Flatulence [Unknown]
  - Diarrhoea [Not Recovered/Not Resolved]
  - Drug ineffective [Unknown]
  - Incorrect drug administration duration [Unknown]
